FAERS Safety Report 7757022-2 (Version None)
Quarter: 2011Q3

REPORT INFORMATION
  Report Type: 
  Country: None (occurrence: None)
  Receive Date: 20110916
  Receipt Date: 20110913
  Transmission Date: 20111222
  Serious: Yes (Death, Hospitalization, Other)
  Sender: FDA-Public Use
  Company Number: US-ALEXION-A201100364

PATIENT
  Sex: Female

DRUGS (4)
  1. IRINOTECAN HCL [Concomitant]
     Dosage: UNK
     Dates: start: 20100101, end: 20100101
  2. IRINOTECAN HCL [Concomitant]
     Dosage: UNK
     Dates: start: 20110324
  3. SOLIRIS [Suspect]
     Indication: PAROXYSMAL NOCTURNAL HAEMOGLOBINURIA
     Dosage: 900 MG, Q2W
     Route: 042
     Dates: start: 20091202, end: 20110616
  4. CETUXIMAB [Concomitant]

REACTIONS (15)
  - VOMITING [None]
  - WEIGHT DECREASED [None]
  - PANCYTOPENIA [None]
  - CONDITION AGGRAVATED [None]
  - PRURITUS GENERALISED [None]
  - PAROXYSMAL NOCTURNAL HAEMOGLOBINURIA [None]
  - DIARRHOEA [None]
  - DUODENAL OBSTRUCTION [None]
  - NERVOUSNESS [None]
  - BLOOD BILIRUBIN INCREASED [None]
  - NEOPLASM MALIGNANT [None]
  - NAUSEA [None]
  - NEUROPATHY PERIPHERAL [None]
  - DECREASED APPETITE [None]
  - ABDOMINAL PAIN [None]
